FAERS Safety Report 25906890 (Version 1)
Quarter: 2025Q4

REPORT INFORMATION
  Report Type: Spontaneous
  Country: US (occurrence: None)
  Receive Date: 20251009
  Receipt Date: 20251009
  Transmission Date: 20260119
  Serious: Yes (Hospitalization)
  Sender: FDA-CTU
  Company Number: None

PATIENT
  Age: 44 Year
  Sex: Male

DRUGS (1)
  1. INREBIC [Suspect]
     Active Substance: FEDRATINIB HYDROCHLORIDE
     Indication: Myeloproliferative neoplasm
     Dosage: 400 MG DAILY BUCCAL ?
     Route: 002
     Dates: start: 20210518

REACTIONS (3)
  - Pain in extremity [None]
  - Thrombophlebitis [None]
  - Vein rupture [None]

NARRATIVE: CASE EVENT DATE: 20250705
